FAERS Safety Report 9278214 (Version 5)
Quarter: 2013Q3

REPORT INFORMATION
  Report Type: Spontaneous
  Country: FR (occurrence: FR)
  Receive Date: 20130508
  Receipt Date: 20130729
  Transmission Date: 20140515
  Serious: Yes (Life-Threatening, Hospitalization)
  Sender: FDA-Public Use
  Company Number: FR-PFIZER INC-2013139444

PATIENT
  Age: 27 Year
  Sex: Female

DRUGS (9)
  1. CELEBREX [Suspect]
     Indication: STILL^S DISEASE ADULT ONSET
     Dosage: UNK
     Route: 048
     Dates: start: 20130219, end: 20130304
  2. KINERET [Suspect]
     Indication: STILL^S DISEASE ADULT ONSET
     Dosage: UNK
     Route: 048
     Dates: start: 201211, end: 20130304
  3. PLAQUENIL [Suspect]
     Indication: STILL^S DISEASE ADULT ONSET
     Dosage: UNK
     Route: 048
     Dates: start: 20130219, end: 20130304
  4. INEXIUM [Suspect]
     Dosage: UNK
     Route: 048
     Dates: start: 20130219, end: 20130304
  5. TERCIAN [Suspect]
     Dosage: UNK
     Route: 048
     Dates: start: 20130219, end: 20130304
  6. OROCAL [Concomitant]
     Dosage: UNK
     Route: 048
     Dates: start: 20130219
  7. LYSANXIA [Concomitant]
     Route: 048
  8. PARACETAMOL [Concomitant]
     Route: 048
  9. CORTANCYL [Concomitant]
     Dosage: UNK
     Route: 048
     Dates: start: 201210

REACTIONS (2)
  - Leukopenia [Recovered/Resolved]
  - Agranulocytosis [Recovered/Resolved]
